FAERS Safety Report 6896730-2 (Version None)
Quarter: 2010Q3

REPORT INFORMATION
  Report Type: 
  Country: None (occurrence: None)
  Receive Date: 20100802
  Receipt Date: 20070205
  Transmission Date: 20110219
  Serious: No
  Sender: FDA-Public Use
  Company Number: US-PFIZER INC-2006142773

PATIENT
  Sex: Female
  Weight: 53.52 kg

DRUGS (7)
  1. LYRICA [Suspect]
     Indication: NEUROPATHY PERIPHERAL
     Dates: start: 20061001
  2. AMBIEN [Concomitant]
  3. XANAX [Concomitant]
  4. PREMPRO [Concomitant]
  5. CLARINEX [Concomitant]
  6. PERCOCET [Concomitant]
  7. LOMOTIL [Concomitant]
     Indication: IRRITABLE BOWEL SYNDROME

REACTIONS (3)
  - DRUG INEFFECTIVE [None]
  - NEUROPATHY PERIPHERAL [None]
  - PSYCHOMOTOR HYPERACTIVITY [None]
